FAERS Safety Report 7500991-6 (Version None)
Quarter: 2011Q2

REPORT INFORMATION
  Report Type: 
  Country: None (occurrence: None)
  Receive Date: 20110524
  Receipt Date: 20110512
  Transmission Date: 20111010
  Serious: Yes (Hospitalization)
  Sender: FDA-Public Use
  Company Number: FR-PFIZER INC-HQWYE558116AUG06

PATIENT
  Age: 53 Year
  Sex: Male

DRUGS (3)
  1. PANTOPRAZOLE SODIUM [Suspect]
     Indication: PROPHYLAXIS AGAINST GASTROINTESTINAL ULCER
     Dosage: 20 MG, 1X/DAY
     Route: 048
     Dates: start: 20060611, end: 20060614
  2. PIROXICAM [Suspect]
     Indication: ARTHRALGIA
     Dosage: 20 MG, 2X/DAY
     Route: 048
     Dates: start: 20060611, end: 20060614
  3. PIROXICAM [Suspect]
     Indication: ARTHRITIS

REACTIONS (4)
  - TOXIC SKIN ERUPTION [None]
  - BLISTER [None]
  - LIP EROSION [None]
  - RASH MACULO-PAPULAR [None]
